APPROVED DRUG PRODUCT: LINCOMYCIN HYDROCHLORIDE
Active Ingredient: LINCOMYCIN HYDROCHLORIDE
Strength: EQ 300MG BASE/ML
Dosage Form/Route: INJECTABLE;INJECTION
Application: A063180 | Product #001
Applicant: SLAYBACK PHARMA LLC
Approved: Apr 16, 1991 | RLD: No | RS: No | Type: DISCN